FAERS Safety Report 16545542 (Version 1)
Quarter: 2019Q3

REPORT INFORMATION
  Report Type: Other
  Country: DE (occurrence: DE)
  Receive Date: 20190709
  Receipt Date: 20190709
  Transmission Date: 20191004
  Serious: Yes (Other)
  Sender: FDA-Public Use
  Company Number: DE-AGG-12-2017-1787

PATIENT

DRUGS (4)
  1. HEPARIN [Concomitant]
     Active Substance: HEPARIN SODIUM
  2. AGGRASTAT [Suspect]
     Active Substance: TIROFIBAN HYDROCHLORIDE
     Indication: ANTIPLATELET THERAPY
  3. ACETYLSALICYLIC ACID (ASA) [Concomitant]
     Active Substance: ASPIRIN
     Dosage: 300-500 MG
  4. P2Y12 ANTAGONIST [Concomitant]
     Dosage: LOADING DOSE OF P2Y12 ANTAGONIST (EITHER CLOPIDOGREL 600 MG, PRASUGREL 60 MG, OR TICAGRELOR 180 MG)

REACTIONS (1)
  - Vascular stent thrombosis [Unknown]
